FAERS Safety Report 25284313 (Version 1)
Quarter: 2025Q2

REPORT INFORMATION
  Report Type: Spontaneous
  Country: US (occurrence: None)
  Receive Date: 20250508
  Receipt Date: 20250508
  Transmission Date: 20250717
  Serious: Yes (Hospitalization, Disabling, Other)
  Sender: FDA-CTU
  Company Number: None

PATIENT
  Age: 44 Year
  Sex: Male
  Weight: 110.25 kg

DRUGS (7)
  1. SERTRALINE [Suspect]
     Active Substance: SERTRALINE HYDROCHLORIDE
     Indication: Sleep disorder
     Dosage: 0.5 TABLET(S) DAILY ORAL
     Route: 048
     Dates: start: 20220912, end: 20220918
  2. VITAMIN D [Concomitant]
     Active Substance: VITAMIN D NOS
  3. ZINC [Concomitant]
     Active Substance: ZINC
  4. MAGNESIUM [Concomitant]
     Active Substance: MAGNESIUM
  5. COENZYME Q10 [Concomitant]
     Active Substance: DIETARY SUPPLEMENT\UBIDECARENONE
  6. BENZYL BENZOATE [Concomitant]
     Active Substance: BENZYL BENZOATE
  7. UNSPECIFIED INGREDIENT [Concomitant]
     Active Substance: UNSPECIFIED INGREDIENT

REACTIONS (8)
  - Brain injury [None]
  - Loss of employment [None]
  - Anger [None]
  - Taste disorder [None]
  - Sexual dysfunction [None]
  - Emotional disorder [None]
  - Depression [None]
  - Sleep apnoea syndrome [None]

NARRATIVE: CASE EVENT DATE: 20220914
